FAERS Safety Report 5852068-3 (Version None)
Quarter: 2008Q3

REPORT INFORMATION
  Report Type: 
  Country: None (occurrence: None)
  Receive Date: 20080819
  Receipt Date: 20080819
  Transmission Date: 20090109
  Serious: No
  Sender: FDA-Public Use
  Company Number: None

PATIENT
  Sex: Female
  Weight: 67.586 kg

DRUGS (2)
  1. NIFEDIPINE [Suspect]
     Indication: RAYNAUD'S PHENOMENON
     Dosage: 30MG
     Dates: end: 20070302
  2. TRAMADOL HCL [Suspect]
     Dosage: 50 MG 4-6 HRS AS NEED
     Dates: start: 20080108, end: 20080114

REACTIONS (4)
  - DIZZINESS [None]
  - DYSPNOEA [None]
  - GAIT DISTURBANCE [None]
  - HEADACHE [None]
